FAERS Safety Report 8590092-0 (Version None)
Quarter: 2012Q3

REPORT INFORMATION
  Report Type: 
  Country: None (occurrence: None)
  Receive Date: 20120813
  Receipt Date: 19910812
  Transmission Date: 20120928
  Serious: Yes (Hospitalization)
  Sender: FDA-Public Use
  Company Number: US-ROCHE-1099910

PATIENT
  Sex: Male

DRUGS (4)
  1. MORPHINE [Concomitant]
  2. NITROGLYCERIN [Concomitant]
  3. ACTIVASE [Suspect]
     Indication: ACUTE MYOCARDIAL INFARCTION
     Dosage: 2 VIALS
  4. CARAFATE [Concomitant]

REACTIONS (1)
  - PAIN [None]
